FAERS Safety Report 8943161 (Version 1)
Quarter: 2012Q4

REPORT INFORMATION
  Report Type: 
  Country: US (occurrence: US)
  Receive Date: 20121204
  Receipt Date: 20121204
  Transmission Date: 20130627
  Serious: Yes (Hospitalization)
  Sender: FDA-Public Use
  Company Number: PHEH2012US023595

PATIENT
  Age: 20 Year
  Sex: Male

DRUGS (2)
  1. EXJADE [Suspect]
     Indication: APLASTIC ANAEMIA
     Dosage: 2250 mg, QD
     Route: 048
     Dates: start: 20121116
  2. EXJADE [Suspect]
     Dosage: 2250 mg, QD
     Route: 048
     Dates: end: 20121123

REACTIONS (3)
  - Blood pressure decreased [Recovering/Resolving]
  - Rash generalised [Recovering/Resolving]
  - Pyrexia [Recovering/Resolving]
